FAERS Safety Report 7811173-2 (Version None)
Quarter: 2011Q4

REPORT INFORMATION
  Report Type: 
  Country: None (occurrence: None)
  Receive Date: 20111013
  Receipt Date: 20111013
  Transmission Date: 20120403
  Serious: Yes (Hospitalization, Other)
  Sender: FDA-Public Use
  Company Number: PHHO2011US01000

PATIENT
  Sex: Female
  Weight: 157.5 kg

DRUGS (12)
  1. PAXIL [Concomitant]
     Indication: ANXIETY
     Dosage: UNK
  2. BACLOFEN [Concomitant]
     Indication: MUSCLE SPASTICITY
     Dosage: UNK
     Dates: start: 20030703
  3. ASPIRIN [Concomitant]
     Dosage: UNK
     Dates: start: 20100527, end: 20110111
  4. FORADIL [Concomitant]
     Indication: ASTHMA
     Dosage: UNK
     Dates: start: 20101228
  5. PRILOSEC [Concomitant]
     Indication: GASTRITIS
  6. GILENYA [Suspect]
     Indication: MULTIPLE SCLEROSIS
     Dosage: 1.25 MG, UNK
     Route: 048
     Dates: start: 20090210
  7. TRAZODONE HYDROCHLORIDE [Concomitant]
     Indication: INSOMNIA
     Dosage: UNK
  8. PRILOSEC [Concomitant]
     Indication: GASTROOESOPHAGEAL REFLUX DISEASE
     Dosage: UNK
     Dates: start: 20101228, end: 20110111
  9. PRILOSEC [Concomitant]
     Indication: EROSIVE OESOPHAGITIS
  10. PREDNISONE [Concomitant]
     Indication: ASTHMA
     Dosage: UNK
  11. LISINOPRIL [Concomitant]
     Indication: HYPERTENSION
     Dosage: UNK
  12. MILNACIPRAN [Concomitant]
     Indication: FIBROMYALGIA
     Dosage: UNK
     Dates: start: 20101228, end: 20110111

REACTIONS (6)
  - DRUG INEFFECTIVE [None]
  - CHRONIC OBSTRUCTIVE PULMONARY DISEASE [None]
  - MULTIPLE SCLEROSIS RELAPSE [None]
  - CHEST PAIN [None]
  - BRONCHITIS [None]
  - INFLUENZA [None]
